FAERS Safety Report 18301767 (Version 2)
Quarter: 2020Q4

REPORT INFORMATION
  Report Type: Report from Study
  Country: DE (occurrence: DE)
  Receive Date: 20200923
  Receipt Date: 20201009
  Transmission Date: 20210113
  Serious: Yes (Death, Life-Threatening, Hospitalization, Other)
  Sender: FDA-Public Use
  Company Number: DE-BRISTOL-MYERS SQUIBB COMPANY-BMS-2020-039880

PATIENT
  Age: 65 Year
  Sex: Male

DRUGS (10)
  1. ATORVASTATIN [Concomitant]
     Active Substance: ATORVASTATIN
     Indication: METABOLIC DISORDER
     Dosage: 40 MILLIGRAM (PRIOR TO START OF NIVOLUMAB TREATMENT)
     Route: 065
  2. ASPIRIN. [Concomitant]
     Active Substance: ASPIRIN
     Indication: PROPHYLAXIS
     Dosage: 100 MILLIGRAM  (PRIOR TO START OF NIVOLUMAB TREATMENT)
     Route: 065
  3. TRUSOPT [Concomitant]
     Active Substance: DORZOLAMIDE HYDROCHLORIDE
     Indication: PRODUCT USED FOR UNKNOWN INDICATION
     Dosage: UNK
     Route: 065
  4. NIVOLUMAB [Suspect]
     Active Substance: NIVOLUMAB
     Indication: RENAL CELL CARCINOMA
     Dosage: 3 MILLIGRAM/KILOGRAM, Q3WK
     Route: 042
     Dates: start: 20200311
  5. ALLO [Concomitant]
     Active Substance: ALLOPURINOL
     Indication: GASTROINTESTINAL DISORDER
     Dosage: 100 MILLIGRAM (PRIOR TO START OF NIVOLUMAB TREATMENT)
     Route: 065
  6. ALLO [Concomitant]
     Active Substance: ALLOPURINOL
     Indication: RENAL DISORDER
  7. CANDESARTAN. [Concomitant]
     Active Substance: CANDESARTAN
     Indication: CARDIOVASCULAR DISORDER
     Dosage: 8 MILLIGRAM  (PRIOR TO START OF NIVOLUMAB TREATMENT)
     Route: 065
  8. IPILIMUMAB [Suspect]
     Active Substance: IPILIMUMAB
     Indication: RENAL CELL CARCINOMA
     Dosage: 1 MILLIGRAM/KILOGRAM, Q3WK
     Route: 042
     Dates: start: 20200311, end: 20200422
  9. BIMATOPROST. [Concomitant]
     Active Substance: BIMATOPROST
     Indication: PRODUCT USED FOR UNKNOWN INDICATION
     Dosage: UNK
     Route: 065
  10. CANDESARTAN. [Concomitant]
     Active Substance: CANDESARTAN
     Indication: CEREBROVASCULAR DISORDER

REACTIONS (10)
  - Colitis [Unknown]
  - Headache [Recovered/Resolved]
  - Ocular hyperaemia [Unknown]
  - Hypertension [Unknown]
  - Pneumocystis jirovecii pneumonia [Fatal]
  - Nausea [Recovered/Resolved]
  - Hydronephrosis [Unknown]
  - Rash [Recovered/Resolved]
  - Back pain [Unknown]
  - Diarrhoea [Recovered/Resolved]

NARRATIVE: CASE EVENT DATE: 20200402
